FAERS Safety Report 25001950 (Version 1)
Quarter: 2025Q1

REPORT INFORMATION
  Report Type: Report from Study
  Country: US (occurrence: US)
  Receive Date: 20250224
  Receipt Date: 20250224
  Transmission Date: 20250409
  Serious: Yes (Other)
  Sender: UCB
  Company Number: US-UCBSA-2024064248

PATIENT
  Sex: Female

DRUGS (2)
  1. CERTOLIZUMAB PEGOL [Suspect]
     Active Substance: CERTOLIZUMAB PEGOL
     Indication: Ankylosing spondylitis
     Dosage: 400 MILLIGRAM, EV 2 WEEKS(QOW)
     Dates: start: 20241106
  2. CERTOLIZUMAB PEGOL [Suspect]
     Active Substance: CERTOLIZUMAB PEGOL
     Dosage: 400 MILLIGRAM, EV 4 WEEKS

REACTIONS (9)
  - Aortic arteriosclerosis [Not Recovered/Not Resolved]
  - Urinary tract infection [Recovering/Resolving]
  - Tendonitis [Recovering/Resolving]
  - Burning sensation [Recovering/Resolving]
  - Dry skin [Recovering/Resolving]
  - Swelling of eyelid [Recovering/Resolving]
  - Erythema [Recovering/Resolving]
  - Platelet count decreased [Not Recovered/Not Resolved]
  - Sinus congestion [Not Recovered/Not Resolved]

NARRATIVE: CASE EVENT DATE: 20240101
